FAERS Safety Report 21110622 (Version 2)
Quarter: 2022Q3

REPORT INFORMATION
  Report Type: Report from Study
  Country: CA (occurrence: CA)
  Receive Date: 20220721
  Receipt Date: 20220725
  Transmission Date: 20221026
  Serious: Yes (Death, Hospitalization)
  Sender: FDA-Public Use
  Company Number: CA-NOVARTISPH-PHHY2016CA059519

PATIENT
  Age: 66 Year
  Sex: Female

DRUGS (11)
  1. SANDOSTATIN LAR DEPOT [Suspect]
     Active Substance: OCTREOTIDE ACETATE
     Indication: Carcinoid tumour
     Dosage: 60 MG (EVERY 2 WEEKS)
     Route: 030
     Dates: start: 20160330, end: 20190705
  2. SANDOSTATIN LAR DEPOT [Suspect]
     Active Substance: OCTREOTIDE ACETATE
     Dosage: 60 MG, QMO (EVERY 4 WEEKS)
     Route: 030
     Dates: start: 20160422
  3. SANDOSTATIN LAR DEPOT [Suspect]
     Active Substance: OCTREOTIDE ACETATE
     Dosage: 60 MG, BIW (EVERY 2 WEEKS)
     Route: 030
     Dates: start: 20170725
  4. SANDOSTATIN LAR DEPOT [Suspect]
     Active Substance: OCTREOTIDE ACETATE
     Dosage: UNK
     Route: 030
     Dates: start: 20180711
  5. SANDOSTATIN LAR DEPOT [Suspect]
     Active Substance: OCTREOTIDE ACETATE
     Dosage: UNK
     Route: 065
     Dates: start: 20190527
  6. SANDOSTATIN LAR DEPOT [Suspect]
     Active Substance: OCTREOTIDE ACETATE
     Dosage: 60 MG, BIW (EVERY 2 WEEKS)
     Route: 030
     Dates: start: 20190610
  7. SANDOSTATIN LAR DEPOT [Suspect]
     Active Substance: OCTREOTIDE ACETATE
     Dosage: 30 MG, Q3W
     Route: 030
     Dates: start: 20220715
  8. SANDOSTATIN [Suspect]
     Active Substance: OCTREOTIDE ACETATE
     Indication: Carcinoid tumour
     Dosage: 100 UG, BID (FOR TWO WEEKS) (STRENGTH 100UG)
     Route: 058
  9. SANDOSTATIN [Suspect]
     Active Substance: OCTREOTIDE ACETATE
     Dosage: 50 UG, BID (STRENGTH 50 UG)
     Route: 058
     Dates: start: 20160301, end: 201603
  10. LORAZEPAM [Concomitant]
     Active Substance: LORAZEPAM
     Indication: Product used for unknown indication
     Dosage: UNK
     Route: 065
  11. LIDOCAINE [Concomitant]
     Active Substance: LIDOCAINE
     Indication: Product used for unknown indication
     Dosage: UNK
     Route: 065

REACTIONS (18)
  - Death [Fatal]
  - Dehydration [Unknown]
  - Weight decreased [Unknown]
  - Blood pressure decreased [Unknown]
  - Blood pressure diastolic decreased [Unknown]
  - Arthralgia [Unknown]
  - Groin pain [Unknown]
  - Peripheral swelling [Unknown]
  - Diarrhoea [Recovering/Resolving]
  - Heart rate decreased [Unknown]
  - Pain [Unknown]
  - Injection site mass [Unknown]
  - Injection site scar [Unknown]
  - Needle issue [Unknown]
  - Anxiety [Unknown]
  - Inappropriate schedule of product administration [Unknown]
  - Injection site haemorrhage [Recovered/Resolved]
  - Incorrect dose administered [Unknown]

NARRATIVE: CASE EVENT DATE: 20160427
